FAERS Safety Report 23235676 (Version 1)
Quarter: 2023Q4

REPORT INFORMATION
  Report Type: Spontaneous
  Country: US (occurrence: US)
  Receive Date: 20231128
  Receipt Date: 20231128
  Transmission Date: 20240109
  Serious: No
  Sender: FDA-Public Use
  Company Number: US-PFIZER INC-202300377216

PATIENT
  Age: 74 Year
  Sex: Female
  Weight: 52.16 kg

DRUGS (1)
  1. IBRANCE [Suspect]
     Active Substance: PALBOCICLIB
     Indication: Breast cancer female
     Dosage: 125 MG
     Dates: start: 20231106

REACTIONS (3)
  - Cough [Not Recovered/Not Resolved]
  - Myalgia [Not Recovered/Not Resolved]
  - Eyelids pruritus [Not Recovered/Not Resolved]

NARRATIVE: CASE EVENT DATE: 20231101
